FAERS Safety Report 4852261-2 (Version None)
Quarter: 2005Q4

REPORT INFORMATION
  Report Type: 
  Country: None (occurrence: None)
  Receive Date: 20051213
  Receipt Date: 20050915
  Transmission Date: 20060501
  Serious: Yes (Hospitalization)
  Sender: FDA-Public Use
  Company Number: US-MERCK-0509USA02469

PATIENT
  Age: 66 Year
  Sex: Male
  Weight: 125 kg

DRUGS (6)
  1. VIOXX [Suspect]
     Indication: ARTHRITIS
     Route: 048
     Dates: start: 20020101, end: 20040901
  2. GLUCOTROL [Concomitant]
     Route: 065
  3. CIPRO [Concomitant]
     Route: 065
  4. AVANDIA [Concomitant]
     Route: 065
  5. ZITHROMAX [Concomitant]
     Route: 065
  6. GLIPIZIDE [Concomitant]
     Route: 065

REACTIONS (7)
  - BLOOD CHOLESTEROL INCREASED [None]
  - CHEST PAIN [None]
  - COLON CANCER [None]
  - DEPRESSION [None]
  - GASTRIC PH DECREASED [None]
  - HYPERTENSION [None]
  - MYOCARDIAL INFARCTION [None]
